FAERS Safety Report 13896263 (Version 1)
Quarter: 2017Q3

REPORT INFORMATION
  Report Type: Spontaneous
  Country: US (occurrence: US)
  Receive Date: 20170822
  Receipt Date: 20170822
  Transmission Date: 20171127
  Serious: Yes (Other)
  Sender: FDA-Public Use
  Company Number: None

PATIENT
  Sex: Female
  Weight: 47.25 kg

DRUGS (3)
  1. IBUPROFEN. [Concomitant]
     Active Substance: IBUPROFEN
  2. TIZANIDINE 4MG [Suspect]
     Active Substance: TIZANIDINE
     Indication: MUSCLE SPASMS
     Dosage: AT BEDTIME ORAL
     Route: 048
     Dates: start: 20170718, end: 20170729
  3. PREDINISONE TAPER [Concomitant]

REACTIONS (4)
  - Alanine aminotransferase increased [None]
  - Aspartate aminotransferase increased [None]
  - Malaise [None]
  - Fatigue [None]

NARRATIVE: CASE EVENT DATE: 20170804
